FAERS Safety Report 19889233 (Version 1)
Quarter: 2021Q3

REPORT INFORMATION
  Report Type: Spontaneous
  Country: US (occurrence: US)
  Receive Date: 20210927
  Receipt Date: 20210927
  Transmission Date: 20211014
  Serious: No
  Sender: FDA-Public Use
  Company Number: US-ELI_LILLY_AND_COMPANY-US202109010560

PATIENT
  Sex: Female

DRUGS (2)
  1. EVENITY [Concomitant]
     Active Substance: ROMOSOZUMAB-AQQG
     Indication: PRODUCT USED FOR UNKNOWN INDICATION
  2. FORTEO [Suspect]
     Active Substance: TERIPARATIDE
     Indication: OSTEOPOROSIS
     Dosage: 20 UG, UNKNOWN
     Route: 058
     Dates: start: 20210827

REACTIONS (4)
  - Gastrooesophageal reflux disease [Unknown]
  - Pain [Unknown]
  - Feeling abnormal [Unknown]
  - Vision blurred [Unknown]
